FAERS Safety Report 6823909-8 (Version None)
Quarter: 2010Q3

REPORT INFORMATION
  Report Type: 
  Country: None (occurrence: None)
  Receive Date: 20100708
  Receipt Date: 20060921
  Transmission Date: 20110219
  Serious: No
  Sender: FDA-Public Use
  Company Number: US-PFIZER INC-2006114698

PATIENT
  Sex: Female
  Weight: 84.37 kg

DRUGS (6)
  1. CHANTIX [Suspect]
     Indication: SMOKING CESSATION THERAPY
     Dates: start: 20060908
  2. AMOXICILLIN [Suspect]
     Indication: GINGIVAL INFECTION
     Dates: start: 20060907
  3. LECITHIN [Concomitant]
  4. STROVITE [Concomitant]
  5. CHONDROITIN/GLUCOSAMINE [Concomitant]
  6. VITAMIN E [Concomitant]

REACTIONS (8)
  - COUGH [None]
  - DYSGEUSIA [None]
  - GINGIVAL PAIN [None]
  - HEADACHE [None]
  - INCREASED UPPER AIRWAY SECRETION [None]
  - NAUSEA [None]
  - SLEEP DISORDER [None]
  - WEIGHT INCREASED [None]
